FAERS Safety Report 8481710-6 (Version None)
Quarter: 2012Q3

REPORT INFORMATION
  Report Type: 
  Country: None (occurrence: None)
  Receive Date: 20120702
  Receipt Date: 20120625
  Transmission Date: 20120928
  Serious: Yes (Hospitalization, Other)
  Sender: FDA-Public Use
  Company Number: JP-ROCHE-754418

PATIENT
  Sex: Female
  Weight: 47 kg

DRUGS (5)
  1. HERCEPTIN [Suspect]
     Dosage: DOSE:DECREASED
     Route: 041
     Dates: start: 20100928, end: 20101130
  2. EPIRUBICIN HYDROCHLORIDE [Suspect]
     Indication: BREAST CANCER
     Dosage: NOTE: SIX TIMES
     Route: 041
     Dates: start: 20100126, end: 20100622
  3. FLUOROURACIL [Suspect]
     Indication: BREAST CANCER
     Dosage: NOTE: SIX TIMES
     Route: 041
  4. HERCEPTIN [Suspect]
     Indication: BREAST CANCER
     Route: 041
     Dates: start: 20100907, end: 20100907
  5. CYCLOPHOSPHAMIDE [Suspect]
     Indication: BREAST CANCER
     Dosage: SIX TIMES
     Route: 041

REACTIONS (3)
  - CARDIAC DISORDER [None]
  - METASTASES TO SKIN [None]
  - METASTASES TO LYMPH NODES [None]
